FAERS Safety Report 6725959-9 (Version None)
Quarter: 2010Q2

REPORT INFORMATION
  Report Type: 
  Country: None (occurrence: None)
  Receive Date: 20100514
  Receipt Date: 20060406
  Transmission Date: 20101027
  Serious: Yes (Other)
  Sender: FDA-Public Use
  Company Number: PHHY2006BR02595

PATIENT
  Age: 46 Year
  Sex: Male
  Weight: 102 kg

DRUGS (4)
  1. DIOVAN [Suspect]
     Indication: HYPERTENSION
     Dosage: 320 MG
     Route: 048
  2. CRESTOR [Concomitant]
     Indication: BLOOD CHOLESTEROL
     Dosage: 10 MG, UNK
  3. CRESTOR [Concomitant]
     Indication: BLOOD TRIGLYCERIDES
  4. ZOLIC [Concomitant]
     Indication: BLOOD URIC ACID
     Dosage: UNK

REACTIONS (4)
  - PAIN [None]
  - RENAL PAIN [None]
  - SWELLING [None]
  - WEIGHT INCREASED [None]
